FAERS Safety Report 16380073 (Version 1)
Quarter: 2019Q2

REPORT INFORMATION
  Report Type: Spontaneous
  Country: JP (occurrence: JP)
  Receive Date: 20190601
  Receipt Date: 20190601
  Transmission Date: 20190711
  Serious: Yes (Other)
  Sender: FDA-Public Use
  Company Number: JP-009507513-1905JPN003418J

PATIENT
  Age: 46 Year
  Sex: Male

DRUGS (1)
  1. PREVYMIS [Suspect]
     Active Substance: LETERMOVIR
     Indication: ANTIVIRAL PROPHYLAXIS
     Dosage: UNK
     Route: 048
     Dates: start: 20190410, end: 20190427

REACTIONS (1)
  - Cytomegalovirus infection [Unknown]

NARRATIVE: CASE EVENT DATE: 20190427
